FAERS Safety Report 5411910-0 (Version None)
Quarter: 2007Q3

REPORT INFORMATION
  Report Type: 
  Country: None (occurrence: None)
  Receive Date: 20070810
  Receipt Date: 20070810
  Transmission Date: 20080115
  Serious: No
  Sender: FDA-Public Use
  Company Number: None

PATIENT
  Sex: Male
  Weight: 72.1219 kg

DRUGS (1)
  1. AMBIEN [Suspect]
     Indication: INSOMNIA
     Dosage: 5 MG QHS PO
     Route: 048

REACTIONS (2)
  - DRUG DEPENDENCE [None]
  - PHARMACEUTICAL PRODUCT COMPLAINT [None]
